FAERS Safety Report 16746718 (Version 1)
Quarter: 2019Q3

REPORT INFORMATION
  Report Type: Spontaneous
  Country: US (occurrence: US)
  Receive Date: 20190827
  Receipt Date: 20190827
  Transmission Date: 20191005
  Serious: Yes (Other)
  Sender: FDA-Public Use
  Company Number: US-PFIZER INC-2019363667

PATIENT
  Age: 50 Year
  Sex: Female
  Weight: 83.46 kg

DRUGS (2)
  1. LISINOPRIL. [Concomitant]
     Active Substance: LISINOPRIL
     Indication: HYPERTENSION
     Dosage: UNK
  2. RELPAX [Suspect]
     Active Substance: ELETRIPTAN HYDROBROMIDE
     Indication: MIGRAINE
     Dosage: 40 MG, UNK
     Route: 048

REACTIONS (5)
  - Pseudomonas infection [Unknown]
  - Deafness [Unknown]
  - Recalled product administered [Unknown]
  - Poor quality product administered [Unknown]
  - Burkholderia infection [Unknown]
